FAERS Safety Report 4874346-7 (Version None)
Quarter: 2006Q1

REPORT INFORMATION
  Report Type: 
  Country: None (occurrence: None)
  Receive Date: 20060106
  Receipt Date: 20051215
  Transmission Date: 20060701
  Serious: Yes (Other)
  Sender: FDA-Public Use
  Company Number: 200514863EU

PATIENT
  Age: 50 Year
  Sex: Female

DRUGS (1)
  1. NICORETTE [Suspect]
     Dosage: 20MG FIVE TIMES PER DAY
     Route: 002
     Dates: start: 20040101, end: 20051220

REACTIONS (2)
  - DEPENDENCE [None]
  - MEDICATION ERROR [None]
